FAERS Safety Report 8531849-1 (Version None)
Quarter: 2012Q3

REPORT INFORMATION
  Report Type: 
  Country: None (occurrence: None)
  Receive Date: 20120716
  Receipt Date: 20120716
  Transmission Date: 20120928
  Serious: No
  Sender: FDA-Public Use
  Company Number: None

PATIENT
  Sex: Female

DRUGS (8)
  1. PRADAXA [Concomitant]
  2. LOMCITIL [Concomitant]
  3. ZOLPIDEM [Concomitant]
  4. PROAIR HFA [Concomitant]
  5. CLOPIDOGREL 75MG. DR. REDDY'S [Suspect]
     Dosage: 75MG 1QD PO
     Route: 048
     Dates: start: 20120521, end: 20120522
  6. LOSARTAN POTASSIUM [Concomitant]
  7. METOPROLOL SUCCINATE [Concomitant]
  8. COLCRYS [Concomitant]

REACTIONS (4)
  - AMNESIA [None]
  - LETHARGY [None]
  - PRODUCT SUBSTITUTION ISSUE [None]
  - CONFUSIONAL STATE [None]
